FAERS Safety Report 6227909-0 (Version None)
Quarter: 2009Q2

REPORT INFORMATION
  Report Type: 
  Country: None (occurrence: None)
  Receive Date: 20090612
  Receipt Date: 20090608
  Transmission Date: 20091009
  Serious: Yes (Life-Threatening, Hospitalization)
  Sender: FDA-Public Use
  Company Number: B0577886A

PATIENT
  Sex: Male

DRUGS (5)
  1. ZIAGEN [Suspect]
     Indication: HIV INFECTION
     Dosage: 1TAB TWICE PER DAY
     Route: 048
     Dates: start: 20090101, end: 20090323
  2. RETROVIR [Suspect]
     Indication: HIV INFECTION
     Route: 048
     Dates: end: 20090101
  3. REYATAZ [Concomitant]
     Indication: HIV INFECTION
     Route: 048
     Dates: start: 20080501, end: 20090301
  4. EPIVIR [Concomitant]
     Indication: HIV INFECTION
     Route: 065
  5. NORVIR [Concomitant]
     Indication: HIV INFECTION
     Route: 065

REACTIONS (8)
  - CHEST PAIN [None]
  - CORONARY ARTERY OCCLUSION [None]
  - DYSAESTHESIA [None]
  - EJECTION FRACTION DECREASED [None]
  - ELECTROCARDIOGRAM ABNORMAL [None]
  - MYOCARDIAL INFARCTION [None]
  - TROPONIN INCREASED [None]
  - VENTRICULAR HYPOKINESIA [None]
